FAERS Safety Report 14404514 (Version 2)
Quarter: 2018Q3

REPORT INFORMATION
  Report Type: Spontaneous
  Country: US (occurrence: US)
  Receive Date: 20180117
  Receipt Date: 20180705
  Transmission Date: 20181010
  Serious: Yes (Other)
  Sender: FDA-Public Use
  Company Number: US-SA-2016SA233067

PATIENT
  Age: 58 Year
  Sex: Female
  Weight: 99.79 kg

DRUGS (9)
  1. DOXYCYCLINE HYDROCHLORIDE [Concomitant]
     Active Substance: DOXYCYCLINE HYDROCHLORIDE
     Dosage: UNK, UNK
     Route: 065
  2. LOPRESSOR [Concomitant]
     Active Substance: METOPROLOL TARTRATE
     Dosage: UNK UNK,UNK
     Route: 065
     Dates: start: 20120914
  3. TAXOTERE [Suspect]
     Active Substance: DOCETAXEL
     Indication: INVASIVE DUCTAL BREAST CARCINOMA
     Dosage: 75 MG/M2,Q3W
     Route: 042
     Dates: start: 20120925, end: 20120925
  4. ACETYLSALICYLIC ACID [Concomitant]
     Active Substance: ASPIRIN
     Route: 065
  5. TAXOTERE [Suspect]
     Active Substance: DOCETAXEL
     Dosage: 75 MG/M2,Q3W
     Route: 042
     Dates: start: 20130218, end: 20130218
  6. ADRIAMYCIN [DOXORUBICIN] [Concomitant]
     Dosage: UNK, UNK
     Route: 065
  7. LIPITOR [Concomitant]
     Active Substance: ATORVASTATIN CALCIUM
     Dosage: UNK UNK,UNK
     Route: 065
     Dates: start: 20120914
  8. NEOSAR [Concomitant]
     Active Substance: CYCLOPHOSPHAMIDE
     Dosage: UNK, UNK
     Route: 065
  9. IMDUR [Concomitant]
     Active Substance: ISOSORBIDE MONONITRATE
     Route: 065

REACTIONS (6)
  - Anxiety [Unknown]
  - Impaired quality of life [Unknown]
  - Alopecia [Recovering/Resolving]
  - Emotional distress [Unknown]
  - Pain [Unknown]
  - Psychological trauma [Unknown]

NARRATIVE: CASE EVENT DATE: 20121001
